FAERS Safety Report 6009150-X (Version None)
Quarter: 2008Q4

REPORT INFORMATION
  Report Type: 
  Country: None (occurrence: None)
  Receive Date: 20081216
  Receipt Date: 20081114
  Transmission Date: 20090506
  Serious: Yes (Hospitalization, Other)
  Sender: FDA-Public Use
  Company Number: IMP_03976_2008

PATIENT
  Sex: Female

DRUGS (1)
  1. BUDEPRION 150 MG (NOT SPECIFIED) [Suspect]
     Indication: DEPRESSION
     Dosage: DF
     Dates: start: 20070701, end: 20080801

REACTIONS (6)
  - ABNORMAL BEHAVIOUR [None]
  - DRUG EXPOSURE DURING PREGNANCY [None]
  - DRUG INEFFECTIVE [None]
  - POSTPARTUM DEPRESSION [None]
  - SUICIDAL IDEATION [None]
  - THERAPEUTIC RESPONSE UNEXPECTED WITH DRUG SUBSTITUTION [None]
